FAERS Safety Report 7001195-6 (Version None)
Quarter: 2010Q3

REPORT INFORMATION
  Report Type: 
  Country: None (occurrence: None)
  Receive Date: 20100920
  Receipt Date: 20070503
  Transmission Date: 20110219
  Serious: Yes (Other)
  Sender: FDA-Public Use
  Company Number: US-ASTRAZENECA-2006UW23807

PATIENT
  Age: 386 Month
  Sex: Male
  Weight: 82.1 kg

DRUGS (15)
  1. SEROQUEL [Suspect]
     Indication: BIPOLAR I DISORDER
     Route: 048
     Dates: start: 20030115
  2. SEROQUEL [Suspect]
     Indication: BIPOLAR DISORDER
     Route: 048
     Dates: start: 20030115
  3. SEROQUEL [Suspect]
     Indication: SCHIZOPHRENIA
     Route: 048
     Dates: start: 20030115
  4. SEROQUEL [Suspect]
     Dosage: 200- AT NIGHT
     Route: 048
     Dates: start: 20041101
  5. SEROQUEL [Suspect]
     Dosage: 200- AT NIGHT
     Route: 048
     Dates: start: 20041101
  6. SEROQUEL [Suspect]
     Dosage: 200- AT NIGHT
     Route: 048
     Dates: start: 20041101
  7. GEODON [Concomitant]
     Route: 048
     Dates: start: 20030201
  8. GEODON [Concomitant]
     Dates: start: 20041101
  9. ZYPREXA [Concomitant]
     Dates: start: 20010401
  10. RISPERDAL [Concomitant]
     Indication: PSYCHOTIC DISORDER
     Dates: start: 20000801
  11. COGENTIN [Concomitant]
     Indication: AFFECTIVE DISORDER
     Dates: start: 20000801
  12. DEPAKOTE [Concomitant]
     Route: 048
     Dates: start: 20000701
  13. HALDOL [Concomitant]
     Route: 048
     Dates: start: 20000701
  14. TRAZODONE HCL [Concomitant]
     Route: 048
     Dates: start: 20000701
  15. KLONOPIN [Concomitant]
     Route: 048
     Dates: start: 20000701

REACTIONS (5)
  - DIABETES MELLITUS [None]
  - DIABETIC COMA [None]
  - DIABETIC KETOACIDOSIS [None]
  - HYPERLIPIDAEMIA [None]
  - TYPE 1 DIABETES MELLITUS [None]
